FAERS Safety Report 6154771-7 (Version None)
Quarter: 2009Q2

REPORT INFORMATION
  Report Type: 
  Country: None (occurrence: None)
  Receive Date: 20090414
  Receipt Date: 20090407
  Transmission Date: 20091009
  Serious: Yes (Hospitalization)
  Sender: FDA-Public Use
  Company Number: US-GENENTECH-280221

PATIENT
  Sex: Female
  Weight: 80.726 kg

DRUGS (8)
  1. XOLAIR [Suspect]
     Indication: ASTHMA
     Dosage: 375 MG, Q2W
     Route: 058
     Dates: start: 20080616, end: 20090224
  2. ASTELIN [Concomitant]
     Indication: RHINITIS
     Dosage: 2 PUFF, UNK
     Route: 045
  3. NASONEX [Concomitant]
     Indication: RHINITIS
     Dosage: 2 PUFF, UNK
     Route: 045
  4. ADVAIR HFA [Concomitant]
     Indication: ASTHMA
     Dosage: 1 PUFF, UNK
  5. ELETRIPTAN [Concomitant]
     Indication: SYNCOPE
     Dosage: 20 MG, PRN
     Route: 048
  6. ELETRIPTAN [Concomitant]
     Indication: HEADACHE
  7. PREDNISONE TAB [Concomitant]
     Indication: ASTHMA
     Route: 048
  8. ACCOLATE [Concomitant]
     Indication: ASTHMA
     Dosage: 20 MG, QD
     Route: 048

REACTIONS (3)
  - DIZZINESS [None]
  - STRIDOR [None]
  - SYNCOPE [None]
